FAERS Safety Report 9644822 (Version 1)
Quarter: 2013Q4

REPORT INFORMATION
  Report Type: Report from Study
  Country: ID (occurrence: ID)
  Receive Date: 20131025
  Receipt Date: 20131025
  Transmission Date: 20140711
  Serious: Yes (Death, Other)
  Sender: FDA-Public Use
  Company Number: PHHY2013ID120253

PATIENT
  Age: 28 Year
  Sex: Female

DRUGS (1)
  1. GLIVEC [Suspect]
     Indication: CHRONIC MYELOID LEUKAEMIA
     Dosage: 100 MG, 4 TIMES PER DAY
     Route: 048

REACTIONS (4)
  - Death [Fatal]
  - Neoplasm [Unknown]
  - Splenomegaly [Unknown]
  - Stomatitis [Unknown]
